FAERS Safety Report 15180530 (Version 1)
Quarter: 2018Q3

REPORT INFORMATION
  Report Type: Spontaneous
  Country: US (occurrence: US)
  Receive Date: 20180723
  Receipt Date: 20180723
  Transmission Date: 20181010
  Serious: No
  Sender: FDA-Public Use
  Company Number: US-ELI_LILLY_AND_COMPANY-US201806012962

PATIENT
  Sex: Female

DRUGS (5)
  1. HUMULIN N [Suspect]
     Active Substance: INSULIN HUMAN
     Indication: PRODUCT USED FOR UNKNOWN INDICATION
     Dosage: 33 U, EACH EVENING
     Route: 065
     Dates: start: 20180605
  2. LANTUS [Concomitant]
     Active Substance: INSULIN GLARGINE
  3. HUMALOG [Suspect]
     Active Substance: INSULIN LISPRO
     Indication: PRODUCT USED FOR UNKNOWN INDICATION
     Dosage: 9 U, UNKNOWN, WITH EACH MEAL
     Route: 065
     Dates: start: 201805
  4. HUMULIN N [Suspect]
     Active Substance: INSULIN HUMAN
     Dosage: 33 U, EACH EVENING
     Route: 065
  5. HUMALOG [Suspect]
     Active Substance: INSULIN LISPRO
     Dosage: 9 U, UNKNOWN, WITH EACH MEAL
     Route: 065
     Dates: start: 201805

REACTIONS (4)
  - Drug dose omission [Unknown]
  - Maternal exposure during pregnancy [Unknown]
  - Blood pressure increased [Unknown]
  - Blood glucose abnormal [Unknown]
